FAERS Safety Report 4725499-2 (Version None)
Quarter: 2005Q3

REPORT INFORMATION
  Report Type: 
  Country: None (occurrence: None)
  Receive Date: 20050727
  Receipt Date: 20050714
  Transmission Date: 20060218
  Serious: Yes (Death, Life-Threatening)
  Sender: FDA-Public Use
  Company Number: PT-JNJFOC-20050701177

PATIENT
  Sex: Male

DRUGS (5)
  1. REMICADE [Suspect]
     Dosage: THIRD INFUSION
     Route: 042
  2. REMICADE [Suspect]
     Dosage: 25 MG/DAY. 2 DOSES
     Route: 042
  3. AZATHIPRINE [Concomitant]
     Dosage: 25-50MG
     Route: 048
  4. PREDNISOLONE [Concomitant]
     Route: 048
  5. CEFTRIAXONE [Concomitant]
     Route: 042

REACTIONS (7)
  - CEREBRAL HAEMORRHAGE [None]
  - ENCEPHALITIS [None]
  - HYDROCEPHALUS [None]
  - INTRAVENTRICULAR HAEMORRHAGE [None]
  - LISTERIOSIS [None]
  - POST PROCEDURAL COMPLICATION [None]
  - SHUNT MALFUNCTION [None]
